FAERS Safety Report 17333620 (Version 3)
Quarter: 2020Q1

REPORT INFORMATION
  Report Type: Spontaneous
  Country: ES (occurrence: ES)
  Receive Date: 20200128
  Receipt Date: 20200323
  Transmission Date: 20200409
  Serious: Yes (Hospitalization, Other)
  Sender: FDA-Public Use
  Company Number: ES-LUPIN PHARMACEUTICALS INC.-2020-00293

PATIENT
  Age: 43 Year
  Sex: Female

DRUGS (3)
  1. CHONDROITIN SULPHATE [Concomitant]
     Active Substance: SODIUM CHONDROITIN SULFATE
     Indication: MENISCUS INJURY
     Dosage: 400 MILLIGRAM, QD
     Route: 065
  2. CELECOXIB. [Suspect]
     Active Substance: CELECOXIB
     Indication: MENISCUS INJURY
     Dosage: 200 MILLIGRAM, QD
     Route: 065
  3. METAMIZOLE [Concomitant]
     Active Substance: METAMIZOLE
     Indication: MENISCUS INJURY
     Dosage: 1.725 MILLIGRAM, QD
     Route: 065

REACTIONS (1)
  - Bipolar disorder [Unknown]
